FAERS Safety Report 9993558 (Version 1)
Quarter: 2014Q1

REPORT INFORMATION
  Report Type: Report from Study
  Country: US (occurrence: US)
  Receive Date: 20140310
  Receipt Date: 20140310
  Transmission Date: 20141002
  Serious: Yes (Hospitalization)
  Sender: FDA-Public Use
  Company Number: PHEH2014US004733

PATIENT
  Age: 60 Year
  Sex: Male
  Weight: 77.98 kg

DRUGS (19)
  1. ZOMETA [Suspect]
     Dosage: 4 MG, UNK
  2. LYRICA [Concomitant]
     Dosage: 300 MG, UNK
  3. HYDROCODONE W/APAP [Concomitant]
     Dosage: 7.5 UKN, UNK
  4. HYDROCODONE W/APAP [Concomitant]
     Dosage: 325 UKN, UNK
  5. GLIMEPIRIDE [Concomitant]
     Dosage: 4 MG, UNK
  6. ASPIRIN BUFFERED [Concomitant]
     Dosage: 325 MG, UNK
  7. TAMIFLU [Concomitant]
     Dosage: 75 MG, UNK
  8. TESTOSTERONE [Concomitant]
     Dosage: 100 MG/ML, UNK
  9. ACYCLOVIR [Concomitant]
     Dosage: 200 MG, UNK
  10. OMEPRAZOLE [Concomitant]
     Dosage: 20 MG, UNK
  11. CYMBALTA [Concomitant]
     Dosage: 20 MG, UNK
  12. VELCADE [Concomitant]
     Dosage: 3.5 MG, UNK
  13. MAGNESIUM [Concomitant]
     Dosage: 30 MG, UNK
  14. OXYCODONE [Concomitant]
     Dosage: 5 MG, UNK
  15. ACTIVE Q [Concomitant]
     Dosage: UNK UKN, UNK
  16. SAW PALMETTO [Concomitant]
     Dosage: UNK UKN, UNK
  17. CHELATED MAGNESIUM [Concomitant]
     Dosage: 16.6 MG, UNK
  18. REVLIMID [Concomitant]
     Dosage: 10 MG, UNK
  19. AMITRIPTYLINE [Concomitant]
     Dosage: 50 MG, UNK

REACTIONS (3)
  - Diabetes mellitus [Recovered/Resolved]
  - Pneumonia [Recovered/Resolved]
  - Influenza [Recovered/Resolved]
